FAERS Safety Report 5131122-8 (Version None)
Quarter: 2006Q4

REPORT INFORMATION
  Report Type: 
  Country: None (occurrence: None)
  Receive Date: 20061016
  Receipt Date: 20061003
  Transmission Date: 20070319
  Serious: Yes (Other)
  Sender: FDA-Public Use
  Company Number: 2006124178

PATIENT
  Sex: Male

DRUGS (7)
  1. NEURONTIN [Suspect]
     Dosage: 600 MG (300  MG, 2 IN 1 D), ORAL
     Route: 048
     Dates: start: 20050501
  2. ZOLADEX [Concomitant]
  3. ALL OTHER THERAPEUTIC PRODUCTS [Concomitant]
  4. MICARDIS [Concomitant]
  5. AMARYL [Concomitant]
  6. SECOTEX (TAMSULOSIN HYDROCHLORIDE) [Concomitant]
  7. SOMALGIN (ACETYLSALICYLIC ACID, ALUMINIUM GLYCINATE, MAGNESIUM CARBONA [Concomitant]

REACTIONS (4)
  - BLOOD CHOLESTEROL ABNORMAL [None]
  - BLOOD PRESSURE INCREASED [None]
  - BLOOD TRIGLYCERIDES ABNORMAL [None]
  - DIABETES MELLITUS [None]
